FAERS Safety Report 25719710 (Version 1)
Quarter: 2025Q3

REPORT INFORMATION
  Report Type: Other
  Country: CA (occurrence: CA)
  Receive Date: 20250825
  Receipt Date: 20250825
  Transmission Date: 20251021
  Serious: Yes (Other)
  Sender: APOTEX
  Company Number: CA-PGRTD-E2B_07707373

PATIENT
  Age: 58 Year
  Sex: Female

DRUGS (1)
  1. AMBRISENTAN [Suspect]
     Active Substance: AMBRISENTAN
     Indication: Pulmonary arterial hypertension
     Dosage: 1 EVERY 1 DAYS
     Route: 048

REACTIONS (4)
  - Ill-defined disorder [Unknown]
  - Pruritus [Unknown]
  - Intervertebral disc degeneration [Unknown]
  - Dizziness [Unknown]
